FAERS Safety Report 15877889 (Version 1)
Quarter: 2019Q1

REPORT INFORMATION
  Report Type: Spontaneous
  Country: US (occurrence: US)
  Receive Date: 20190128
  Receipt Date: 20190128
  Transmission Date: 20190417
  Serious: Yes (Other)
  Sender: FDA-Public Use
  Company Number: US-SA-2019SA020253

PATIENT
  Age: 59 Year
  Sex: Female

DRUGS (10)
  1. METHOTREXATE. [Suspect]
     Active Substance: METHOTREXATE
     Dosage: UNK
     Dates: start: 20091201, end: 20170801
  2. OTEZLA [Suspect]
     Active Substance: APREMILAST
  3. XELJANZ XR [Suspect]
     Active Substance: TOFACITINIB CITRATE
     Indication: RHEUMATOID ARTHRITIS
  4. AZITHROMYCIN ANHYDROUS. [Suspect]
     Active Substance: AZITHROMYCIN ANHYDROUS
     Dosage: UNK
     Dates: start: 201303, end: 201306
  5. SULFASALAZINE. [Suspect]
     Active Substance: SULFASALAZINE
     Dosage: UNK
     Dates: start: 20140201
  6. HUMIRA [Suspect]
     Active Substance: ADALIMUMAB
     Indication: RHEUMATOID ARTHRITIS
     Dosage: UNK
     Route: 058
     Dates: start: 201303, end: 201402
  7. RITUXAN [Concomitant]
     Active Substance: RITUXIMAB
     Dosage: UNK
     Dates: start: 201310, end: 201702
  8. ARAVA [Suspect]
     Active Substance: LEFLUNOMIDE
     Dosage: UNK
     Dates: start: 201210, end: 201303
  9. ENBREL [Suspect]
     Active Substance: ETANERCEPT
     Indication: RHEUMATOID ARTHRITIS
     Dosage: UNK
     Dates: start: 20121001, end: 20130301
  10. XELJANZ XR [Suspect]
     Active Substance: TOFACITINIB CITRATE
     Indication: PSORIATIC ARTHROPATHY
     Dosage: 11 MG, QID
     Route: 048
     Dates: start: 201706

REACTIONS (10)
  - Gastrointestinal disorder [Unknown]
  - Intervertebral disc protrusion [Unknown]
  - Diabetes mellitus [Unknown]
  - Back disorder [Unknown]
  - Body height decreased [Unknown]
  - Skin cancer [Unknown]
  - Lip squamous cell carcinoma [Unknown]
  - Psoriasis [Unknown]
  - Hip arthroplasty [Unknown]
  - Drug ineffective [Unknown]

NARRATIVE: CASE EVENT DATE: 201303
